FAERS Safety Report 6172641-5 (Version None)
Quarter: 2009Q2

REPORT INFORMATION
  Report Type: 
  Country: None (occurrence: None)
  Receive Date: 20090430
  Receipt Date: 20090422
  Transmission Date: 20091009
  Serious: Yes (Other)
  Sender: FDA-Public Use
  Company Number: US-RANBAXY-2009RR-23590

PATIENT
  Age: 52 Year
  Sex: Female

DRUGS (2)
  1. IBUPROFEN [Suspect]
     Indication: PRURITUS
     Dosage: 600 MG, BID
  2. IBUPROFEN [Suspect]
     Indication: PAIN

REACTIONS (1)
  - PURPURA [None]
